FAERS Safety Report 8839687 (Version 2)
Quarter: 2012Q4

REPORT INFORMATION
  Report Type: 
  Country: US (occurrence: US)
  Receive Date: 20121015
  Receipt Date: 20121226
  Transmission Date: 20130627
  Serious: Yes (Hospitalization, Other)
  Sender: FDA-Public Use
  Company Number: PHEH2012US020124

PATIENT
  Age: 58 Year
  Sex: Female

DRUGS (22)
  1. GILENYA [Suspect]
     Indication: MULTIPLE SCLEROSIS
     Dosage: 0.5 mg, QD
     Route: 048
     Dates: start: 20110701, end: 20121001
  2. AMPYRA [Suspect]
     Indication: GAIT DISTURBANCE
     Dosage: 1 DF, BID
     Route: 048
  3. NITROFURANTOIN [Concomitant]
  4. CIPROFLOXACIN [Concomitant]
  5. FOLIC ACID [Concomitant]
  6. VENLAFAXINE HYDROCHLORIDE [Concomitant]
     Indication: DEPRESSIVE SYMPTOM
     Dosage: 1 DF, BID
     Route: 048
  7. METHYLPHENIDATE HYDROCHLORIDE [Concomitant]
     Dosage: 1 DF, QID
  8. FOLBEE PLUS [Concomitant]
     Dosage: 1 DF, daily
     Route: 048
  9. BACLOFEN [Concomitant]
     Indication: MUSCLE SPASTICITY
     Dosage: 2 DF, TID
  10. VITAMIN D3 [Concomitant]
     Dosage: 25000 IU, QW
  11. FISH OIL [Concomitant]
     Dosage: UNK UKN, UNK
  12. IRON [Concomitant]
     Dosage: 1 DF, daily
     Route: 048
  13. COREG [Concomitant]
     Dosage: 1 DF, BID
  14. ALEVE [Concomitant]
     Indication: PAIN IN EXTREMITY
     Dosage: 2 DF, PRN
     Route: 048
  15. ASPIRIN [Concomitant]
     Dosage: 1 DF, daily
     Route: 048
  16. TYLENOL EXTRA STRENGTH [Concomitant]
     Indication: PAIN
     Dosage: UNK UKN, PRN
  17. LASIX [Concomitant]
     Dosage: 1 DF, PRN
     Route: 048
  18. K-LOR [Concomitant]
     Dosage: 1 DF, daily
     Route: 048
  19. GABAPENTIN [Concomitant]
     Indication: TREMOR
     Dosage: 1 DF, BID
  20. MULTIVITAMINS WITH MINERALS [Concomitant]
     Dosage: 1 DF, daily
  21. CALCIUM W/MINERALS [Concomitant]
     Dosage: 2 DF, daily (600-200 mg-IU)
     Route: 048
  22. AMANTADINE HCL [Concomitant]
     Dosage: 1 DF, BID

REACTIONS (27)
  - Grand mal convulsion [Unknown]
  - Tongue biting [Unknown]
  - Headache [Unknown]
  - Feeling hot [Unknown]
  - Confusional state [Unknown]
  - Cold sweat [Unknown]
  - Hyperhidrosis [Unknown]
  - Disturbance in attention [Unknown]
  - Syncope [Unknown]
  - Mouth haemorrhage [Unknown]
  - Neurogenic bladder [Unknown]
  - Hemiplegia [Unknown]
  - Optic atrophy [Unknown]
  - Visual acuity reduced [Unknown]
  - Optic neuritis [Unknown]
  - Balance disorder [Unknown]
  - Extensor plantar response [Unknown]
  - Ataxia [Unknown]
  - Abasia [Unknown]
  - Protein total decreased [Unknown]
  - Aphasia [Unknown]
  - Nausea [Unknown]
  - Fall [Unknown]
  - Gait disturbance [Unknown]
  - White blood cell count decreased [Unknown]
  - Dizziness [Unknown]
  - Alanine aminotransferase increased [Unknown]
